FAERS Safety Report 5508085-6 (Version None)
Quarter: 2007Q4

REPORT INFORMATION
  Report Type: 
  Country: None (occurrence: None)
  Receive Date: 20071106
  Receipt Date: 20071024
  Transmission Date: 20080405
  Serious: Yes (Other)
  Sender: FDA-Public Use
  Company Number: US-SHR-US-2007-024662

PATIENT
  Age: 45 Year
  Sex: Female

DRUGS (4)
  1. BETASERON [Suspect]
     Dosage: 2 MIU, EVERY 2D
     Route: 058
     Dates: start: 20070623
  2. BETASERON [Suspect]
     Dosage: 4 MIU, EVERY 2D
     Route: 058
  3. BETASERON [Suspect]
     Dosage: 8 MIU, EVERY 2D
     Route: 058
  4. TYLENOL (CAPLET) [Concomitant]
     Indication: PREMEDICATION
     Dosage: 650 MG, UNK
     Route: 048

REACTIONS (4)
  - CROHN'S DISEASE [None]
  - DIARRHOEA [None]
  - MULTIPLE SCLEROSIS [None]
  - VOMITING [None]
